FAERS Safety Report 16232770 (Version 1)
Quarter: 2019Q2

REPORT INFORMATION
  Report Type: Spontaneous
  Country: CA (occurrence: CA)
  Receive Date: 20190424
  Receipt Date: 20190424
  Transmission Date: 20190711
  Serious: Yes (Life-Threatening, Hospitalization, Disabling, Other)
  Sender: FDA-Public Use
  Company Number: CA-009507513-1904CAN009620

PATIENT
  Age: 60 Year
  Sex: Female
  Weight: 68 kg

DRUGS (11)
  1. PANTOPRAZOLE [Concomitant]
     Active Substance: PANTOPRAZOLE
     Dosage: ENTERIC COATED TABLET
  2. BISOPROLOL [Concomitant]
     Active Substance: BISOPROLOL
  3. FRAGMIN [Concomitant]
     Active Substance: DALTEPARIN SODIUM
     Dosage: SOLUTION INTRAVENOUS
  4. KEYTRUDA [Suspect]
     Active Substance: PEMBROLIZUMAB
     Indication: NON-SMALL CELL LUNG CANCER METASTATIC
     Dosage: 134 MILLIGRAM, Q3, INTRAVENOUS (NOT OTHERWISE SPECIFIED)
     Route: 042
  5. DIGOXIN. [Concomitant]
     Active Substance: DIGOXIN
  6. KEYTRUDA [Suspect]
     Active Substance: PEMBROLIZUMAB
     Indication: METASTASES TO CENTRAL NERVOUS SYSTEM
  7. KEYTRUDA [Suspect]
     Active Substance: PEMBROLIZUMAB
     Indication: LUNG ADENOCARCINOMA
  8. KEYTRUDA [Suspect]
     Active Substance: PEMBROLIZUMAB
     Indication: METASTASES TO LYMPH NODES
  9. KEYTRUDA [Suspect]
     Active Substance: PEMBROLIZUMAB
     Indication: ADENOSQUAMOUS CELL LUNG CANCER
  10. DEXAMETHASONE. [Concomitant]
     Active Substance: DEXAMETHASONE
  11. HYDROCODONE BITARTRATE. [Concomitant]
     Active Substance: HYDROCODONE BITARTRATE

REACTIONS (5)
  - Thrombectomy [Unknown]
  - Pain [Unknown]
  - Peripheral ischaemia [Unknown]
  - Thromboembolectomy [Unknown]
  - Peripheral artery thrombosis [Unknown]
